FAERS Safety Report 9251730 (Version 1)
Quarter: 2013Q1

REPORT INFORMATION
  Report Type: Spontaneous
  Country: US (occurrence: None)
  Receive Date: 20130305
  Receipt Date: 20130305
  Transmission Date: 20140127
  Serious: Yes (Other)
  Sender: FDA-Public Use
  Company Number: 163-21880-12092645

PATIENT
  Age: 75 Year
  Sex: Female
  Weight: 49.9 kg

DRUGS (17)
  1. REVLIMID [Suspect]
     Indication: PLASMA CELL MYELOMA
     Dosage: 12/29/2011 - UNKNOWN, CAPSULE, 5 MG, 28 IN 28 D, PO
  2. VITAMINS [Concomitant]
  3. ALLOPURINOL [Concomitant]
  4. CLEMASTINE (CLEMASTINE) [Concomitant]
  5. DILAUDID (HYDROMORPHONE HYDROCHLORIDE) [Concomitant]
  6. ESTRACE (ESTRADIOL) [Concomitant]
  7. FLEXERIL (CYCLOBENZAPRINE HYDROCHLORIDE) [Concomitant]
  8. MAGNESIUM OXIDE (MAGNESIUM OXIDE) [Concomitant]
  9. NIASPAN EXTENDED-RELEASE (NICOTINIC ACID) [Concomitant]
  10. OMEPRAZOLE (OMEPRAZOLE) [Concomitant]
  11. ONDASETRON (ONDANSETRON) [Concomitant]
  12. SIMETHICONE (DIMETICONE, ACTIVATED) [Concomitant]
  13. SYNTHROID (LEVOTHYROXINE SODIUM) [Concomitant]
  14. VITAMIN D-3 (COLECALCIFEROL) [Concomitant]
  15. XANAX (ALPRAZOLAM) [Concomitant]
  16. VELCADE (BORTEZOMIB) [Concomitant]
  17. DEXAMETHASONE (DEXAMETHASONE) [Concomitant]

REACTIONS (4)
  - Diarrhoea [None]
  - Vomiting [None]
  - Platelet count decreased [None]
  - Pruritus [None]
